FAERS Safety Report 4320254-X (Version None)
Quarter: 2004Q1

REPORT INFORMATION
  Report Type: 
  Country: None (occurrence: None)
  Receive Date: 20040317
  Receipt Date: 20040304
  Transmission Date: 20041129
  Serious: Yes (Other)
  Sender: FDA-Public Use
  Company Number: 2004015975

PATIENT
  Age: 41 Year
  Sex: Male

DRUGS (8)
  1. LIPITOR [Suspect]
     Indication: ILL-DEFINED DISORDER
     Dosage: 40 MG
     Dates: start: 20010101
  2. MINIPRESS [Suspect]
     Indication: MICTURITION DISORDER
     Dates: start: 20040217, end: 20040221
  3. CANDESARTAN CILEXETIL (CANDESARTAN CILEXETIL) [Concomitant]
  4. FUROSEMIDE [Concomitant]
  5. ACETYLSALICYLIC ACID SRT [Concomitant]
  6. LEVOTHYROXINE SODIUM [Concomitant]
  7. ESOMEPRAZOLE MAGNESIUM (ESOMEPRAZOLE MAGNESIUM) [Concomitant]
  8. MULTIVITAMIN [Concomitant]

REACTIONS (6)
  - BACK PAIN [None]
  - BENIGN PROSTATIC HYPERPLASIA [None]
  - BREAST MASS [None]
  - BREAST PAIN [None]
  - LYMPHADENOPATHY [None]
  - SURGERY [None]
